FAERS Safety Report 16393644 (Version 4)
Quarter: 2019Q3

REPORT INFORMATION
  Report Type: Spontaneous
  Country: US (occurrence: US)
  Receive Date: 20190605
  Receipt Date: 20190819
  Transmission Date: 20191004
  Serious: No
  Sender: FDA-Public Use
  Company Number: US-PFIZER INC-2019233940

PATIENT
  Age: 59 Year
  Sex: Male
  Weight: 84 kg

DRUGS (5)
  1. OMEPRAZOLE. [Concomitant]
     Active Substance: OMEPRAZOLE
     Indication: HYPERCHLORHYDRIA
     Dosage: 40 MG, 1X/DAY
     Route: 048
     Dates: start: 2017
  2. VIAGRA [Suspect]
     Active Substance: SILDENAFIL CITRATE
     Dosage: UNK (QUANTITY FOR 90 DAYS: 60)
  3. VIAGRA [Suspect]
     Active Substance: SILDENAFIL CITRATE
     Dosage: 25 MG, AS NEEDED
     Route: 048
     Dates: start: 201801, end: 201808
  4. VIAGRA [Suspect]
     Active Substance: SILDENAFIL CITRATE
     Indication: ERECTILE DYSFUNCTION
     Dosage: 100 MG, AS NEEDED
  5. VIAGRA [Suspect]
     Active Substance: SILDENAFIL CITRATE
     Dosage: UNK, UNK (TRIED TO TAKE 2)

REACTIONS (2)
  - Intentional product use issue [Unknown]
  - Drug ineffective [Unknown]
